FAERS Safety Report 5049405-9 (Version None)
Quarter: 2006Q3

REPORT INFORMATION
  Report Type: 
  Country: None (occurrence: None)
  Receive Date: 20060711
  Receipt Date: 20060711
  Transmission Date: 20061208
  Serious: Yes (Hospitalization)
  Sender: FDA-Public Use
  Company Number: None

PATIENT
  Sex: Male
  Weight: 127.3 kg

DRUGS (11)
  1. MOXIFLOXACIN HCL [Suspect]
     Indication: TRACHEAL OPERATION
     Dosage: 400MG DAILY  IV
     Route: 042
     Dates: start: 20060530, end: 20060604
  2. CLINDAMYCIN [Concomitant]
  3. ALBUTEROL / IPRATROP [Concomitant]
  4. LANOXIN [Concomitant]
  5. DILTIAZEM HCL [Concomitant]
  6. DOCUSATE CA [Concomitant]
  7. GUAIFENESIN [Concomitant]
  8. KETOCONAZOLE [Concomitant]
  9. RANITIDINE HCL [Concomitant]
  10. SIMVASTATIN [Concomitant]
  11. TERAZOSIN HCL [Concomitant]

REACTIONS (7)
  - BLISTER [None]
  - DRUG ERUPTION [None]
  - EOSINOPHIL COUNT INCREASED [None]
  - ERYTHEMA [None]
  - OEDEMA PERIPHERAL [None]
  - RASH [None]
  - STASIS DERMATITIS [None]
